FAERS Safety Report 4797090-3 (Version None)
Quarter: 2005Q4

REPORT INFORMATION
  Report Type: 
  Country: None (occurrence: None)
  Receive Date: 20051011
  Receipt Date: 20051011
  Transmission Date: 20060501
  Serious: Yes (Other)
  Sender: FDA-Public Use
  Company Number: None

PATIENT
  Age: 43 Year
  Sex: Female
  Weight: 58.9676 kg

DRUGS (2)
  1. LEVAQUIN [Suspect]
     Indication: POST PROCEDURAL COMPLICATION
     Dosage: 500 MG 1 TIME PER DAY PO
     Route: 048
     Dates: start: 20051003, end: 20051008
  2. LEVAQUIN [Suspect]
     Indication: SALIVARY GLAND ENLARGEMENT
     Dosage: 500 MG 1 TIME PER DAY PO
     Route: 048
     Dates: start: 20051003, end: 20051008

REACTIONS (5)
  - ACTIVITIES OF DAILY LIVING IMPAIRED [None]
  - ARTHRALGIA [None]
  - DIZZINESS [None]
  - HEADACHE [None]
  - MYALGIA [None]
